FAERS Safety Report 7925499 (Version 2)
Quarter: 2013Q4

REPORT INFORMATION
  Report Type: Spontaneous
  Country: US (occurrence: US)
  Receive Date: 20110502
  Receipt Date: 20131028
  Transmission Date: 20140711
  Serious: No
  Sender: FDA-Public Use
  Company Number: US-JNJFOC-20110404778

PATIENT
  Age: 60 Year
  Sex: Male
  Weight: 84.82 kg

DRUGS (1)
  1. INVEGA SUSTENNA [Suspect]
     Indication: SCHIZOPHRENIA
     Route: 030

REACTIONS (3)
  - Underdose [Unknown]
  - Device leakage [Unknown]
  - Product quality issue [Unknown]
